FAERS Safety Report 5084672-7 (Version None)
Quarter: 2006Q3

REPORT INFORMATION
  Report Type: 
  Country: None (occurrence: None)
  Receive Date: 20060821
  Receipt Date: 20051207
  Transmission Date: 20061208
  Serious: Yes (Hospitalization, Other)
  Sender: FDA-Public Use
  Company Number: SE-AMGEN-UK160514

PATIENT
  Sex: Male

DRUGS (20)
  1. CINACALCET [Suspect]
     Indication: HYPERPARATHYROIDISM SECONDARY
     Route: 048
     Dates: start: 20050525
  2. ATENOLOL [Concomitant]
     Route: 048
  3. FELODIPINE [Concomitant]
     Route: 048
  4. FUROSEMIDE [Concomitant]
     Route: 048
  5. LIPITOR [Concomitant]
     Route: 048
  6. MIXTARD HUMAN 70/30 [Concomitant]
     Route: 065
  7. SODIUM BICARBONATE [Concomitant]
     Route: 048
  8. NEORECORMON [Concomitant]
     Route: 058
  9. ZESTRIL [Concomitant]
     Route: 061
  10. ETALPHA [Concomitant]
     Route: 065
  11. CALCICHEW [Concomitant]
     Route: 048
  12. GLYCERYL TRINITRATE [Concomitant]
     Route: 065
  13. CALCIUM CARBONATE [Concomitant]
     Route: 048
  14. LANSOPRAZOLE [Concomitant]
     Route: 048
  15. FINASTERIDE [Concomitant]
     Route: 048
  16. ASPIRIN [Concomitant]
     Route: 048
  17. ISOSORBIDE MONONITRATE [Concomitant]
     Route: 048
  18. LACTITOL [Concomitant]
     Route: 065
  19. ANTIHISTAMINES [Concomitant]
     Route: 048
  20. PLENDIL [Concomitant]
     Route: 065

REACTIONS (5)
  - ACUTE CORONARY SYNDROME [None]
  - ANGINA PECTORIS [None]
  - BLOOD PRESSURE DECREASED [None]
  - DEHYDRATION [None]
  - VENTRICULAR EXTRASYSTOLES [None]
